FAERS Safety Report 4466094-2 (Version None)
Quarter: 2004Q3

REPORT INFORMATION
  Report Type: 
  Country: None (occurrence: None)
  Receive Date: 20040929
  Receipt Date: 20040929
  Transmission Date: 20050211
  Serious: Yes (Life-Threatening)
  Sender: FDA-Public Use
  Company Number: None

PATIENT
  Age: 57 Year
  Sex: Male
  Weight: 74.9 kg

DRUGS (1)
  1. MOXIFLOXACIN HCL [Suspect]
     Indication: PAIN
     Dosage: 400 MG IV
     Route: 042
     Dates: start: 20040923

REACTIONS (2)
  - PRURITUS [None]
  - RASH [None]
